FAERS Safety Report 16943176 (Version 1)
Quarter: 2019Q4

REPORT INFORMATION
  Report Type: Spontaneous
  Country: US (occurrence: US)
  Receive Date: 20191021
  Receipt Date: 20191021
  Transmission Date: 20200122
  Serious: No
  Sender: FDA-Public Use
  Company Number: US-AMGEN-USASP2019173699

PATIENT
  Sex: Female

DRUGS (1)
  1. MVASI [Suspect]
     Active Substance: BEVACIZUMAB-AWWB
     Indication: PRODUCT USED FOR UNKNOWN INDICATION
     Dosage: 1280 MILLIGRAM, Q3WK
     Route: 065
     Dates: start: 20190903, end: 20191015

REACTIONS (3)
  - Headache [Unknown]
  - Pyrexia [Unknown]
  - Chills [Unknown]
